FAERS Safety Report 17639593 (Version 14)
Quarter: 2025Q3

REPORT INFORMATION
  Report Type: Report from Study
  Country: US (occurrence: US)
  Receive Date: 20200407
  Receipt Date: 20250715
  Transmission Date: 20251020
  Serious: Yes (Hospitalization, Other)
  Sender: TAKEDA
  Company Number: US-SHIRE-US202001041

PATIENT
  Sex: Female

DRUGS (4)
  1. HUMAN IMMUNOGLOBULIN G\HYALURONIDASE RECOMBINANT HUMAN [Suspect]
     Active Substance: HUMAN IMMUNOGLOBULIN G\HYALURONIDASE (HUMAN RECOMBINANT)
     Indication: Primary immunodeficiency syndrome
  2. HUMAN IMMUNOGLOBULIN G\HYALURONIDASE RECOMBINANT HUMAN [Suspect]
     Active Substance: HUMAN IMMUNOGLOBULIN G\HYALURONIDASE (HUMAN RECOMBINANT)
     Indication: Immunodeficiency common variable
  3. CUVITRU [Suspect]
     Active Substance: HUMAN IMMUNOGLOBULIN G
  4. FENTANYL [Suspect]
     Active Substance: FENTANYL
     Indication: Product used for unknown indication

REACTIONS (26)
  - Croup infectious [Unknown]
  - Pneumonia [Unknown]
  - Blood pressure abnormal [Unknown]
  - Renal impairment [Unknown]
  - Device malfunction [Unknown]
  - Bronchitis [Unknown]
  - Immunoglobulins abnormal [Unknown]
  - Drug ineffective [Unknown]
  - Illness [Unknown]
  - Infusion site swelling [Unknown]
  - Decreased immune responsiveness [Unknown]
  - Overdose [Unknown]
  - Poor venous access [Unknown]
  - Infection [Unknown]
  - Upper respiratory tract infection [Unknown]
  - Fall [Unknown]
  - Memory impairment [Unknown]
  - Ankle fracture [Unknown]
  - White blood cell count increased [Unknown]
  - COVID-19 [Unknown]
  - Respiratory syncytial virus infection [Unknown]
  - Cystitis [Unknown]
  - Device related infection [Unknown]
  - Dyspnoea [Unknown]
  - Arthralgia [Unknown]
  - Erythema [Unknown]
